FAERS Safety Report 11745161 (Version 1)
Quarter: 2015Q4

REPORT INFORMATION
  Report Type: Spontaneous
  Country: US (occurrence: US)
  Receive Date: 20151117
  Receipt Date: 20151117
  Transmission Date: 20160304
  Serious: Yes (Hospitalization)
  Sender: FDA-Public Use
  Company Number: US-IROKO PHARMACEUTICALS LLC-US-I09001-15-00115

PATIENT
  Sex: Female

DRUGS (3)
  1. ZORVOLEX [Suspect]
     Active Substance: DICLOFENAC
     Indication: INFLAMMATION
     Route: 048
     Dates: end: 20150727
  2. ZORVOLEX [Suspect]
     Active Substance: DICLOFENAC
     Indication: PAIN
     Route: 048
  3. OTHER MEDICATIONS [Concomitant]
     Active Substance: UNSPECIFIED INGREDIENT
     Indication: PRODUCT USED FOR UNKNOWN INDICATION
     Route: 065

REACTIONS (2)
  - Lower gastrointestinal haemorrhage [Unknown]
  - Upper gastrointestinal haemorrhage [Unknown]
